FAERS Safety Report 14948143 (Version 2)
Quarter: 2018Q2

REPORT INFORMATION
  Report Type: Report from Study
  Country: IT (occurrence: IT)
  Receive Date: 20180529
  Receipt Date: 20180626
  Transmission Date: 20180711
  Serious: Yes (Other)
  Sender: FDA-Public Use
  Company Number: IT-PFIZER INC-2018212086

PATIENT
  Age: 62 Year
  Sex: Male

DRUGS (3)
  1. COLCHICINE. [Concomitant]
     Active Substance: COLCHICINE
     Indication: RHEUMATOID ARTHRITIS
     Dosage: UNK
  2. BRUFEN [Suspect]
     Active Substance: IBUPROFEN
     Indication: OROPHARYNGEAL PAIN
     Dosage: UNK
     Route: 048
     Dates: start: 20180401, end: 20180403
  3. ZITROMAX [Suspect]
     Active Substance: AZITHROMYCIN
     Indication: OROPHARYNGEAL PAIN
     Dosage: 1 DF, 1X/DAY
     Route: 048
     Dates: start: 20180401, end: 20180403

REACTIONS (3)
  - Macroglossia [Recovering/Resolving]
  - Angioedema [Recovering/Resolving]
  - Palatal oedema [Recovering/Resolving]

NARRATIVE: CASE EVENT DATE: 20180403
